FAERS Safety Report 5025528-5 (Version None)
Quarter: 2006Q2

REPORT INFORMATION
  Report Type: 
  Country: None (occurrence: None)
  Receive Date: 20060608
  Receipt Date: 20060530
  Transmission Date: 20061013
  Serious: Yes (Hospitalization, Other)
  Sender: FDA-Public Use
  Company Number: FR200605006579

PATIENT
  Age: 53 Year
  Sex: Male

DRUGS (3)
  1. ALIMTA [Suspect]
     Indication: LUNG ADENOCARCINOMA
     Dosage: 2 G, OTHER, INTRAVENOUS; SEE IMAGE
     Route: 042
     Dates: start: 20051226, end: 20051226
  2. ALIMTA [Suspect]
     Indication: LUNG ADENOCARCINOMA
     Dosage: 2 G, OTHER, INTRAVENOUS; SEE IMAGE
     Route: 042
     Dates: start: 20060116, end: 20060116
  3. CORTANCYL/FRA/(PREDNISONE) [Concomitant]

REACTIONS (6)
  - DERMATITIS BULLOUS [None]
  - HAEMATOTOXICITY [None]
  - NEUTROPENIA [None]
  - SKIN EXFOLIATION [None]
  - SKIN TOXICITY [None]
  - THROMBOCYTOPENIA [None]
